FAERS Safety Report 18234266 (Version 1)
Quarter: 2020Q3

REPORT INFORMATION
  Report Type: Report from Study
  Country: US (occurrence: US)
  Receive Date: 20200904
  Receipt Date: 20200904
  Transmission Date: 20201103
  Serious: Yes (Hospitalization, Other)
  Sender: FDA-Public Use
  Company Number: US-JNJFOC-A-US2016-135905

PATIENT
  Age: 58 Year
  Sex: Female
  Weight: 62.59 kg

DRUGS (13)
  1. VELETRI [Suspect]
     Active Substance: EPOPROSTENOL
     Dosage: 107 NG/KG, PER MIN
     Route: 042
  2. VELETRI [Suspect]
     Active Substance: EPOPROSTENOL
     Dosage: 113 NG/KG, PER MIN
     Route: 042
  3. VELETRI [Suspect]
     Active Substance: EPOPROSTENOL
     Dosage: 114 NG/KG, PER MIN
     Route: 042
  4. VELETRI [Suspect]
     Active Substance: EPOPROSTENOL
     Dosage: 82 NG/KG, PER MIN
     Route: 042
  5. COUMADIN [Concomitant]
     Active Substance: WARFARIN SODIUM
  6. VELETRI [Suspect]
     Active Substance: EPOPROSTENOL
     Dosage: 123 NG/KG, PER MIN
     Route: 042
  7. ADEMPAS [Concomitant]
     Active Substance: RIOCIGUAT
  8. VELETRI [Suspect]
     Active Substance: EPOPROSTENOL
     Dosage: 81 NG/KG, PER MIN
     Route: 042
  9. VELETRI [Suspect]
     Active Substance: EPOPROSTENOL
     Dosage: 118 NG/KG, PER MIN
     Route: 042
  10. VELETRI [Suspect]
     Active Substance: EPOPROSTENOL
     Dosage: 122 NG/KG, PER MIN
     Route: 042
  11. VELETRI [Suspect]
     Active Substance: EPOPROSTENOL
     Indication: PULMONARY HYPERTENSION
     Dosage: 119 NG/KG, PER MIN
     Route: 042
  12. VELETRI [Suspect]
     Active Substance: EPOPROSTENOL
     Dosage: 79 NG/KG, PER MIN
     Route: 042
     Dates: start: 20121119
  13. LETAIRIS [Concomitant]
     Active Substance: AMBRISENTAN

REACTIONS (40)
  - Hospitalisation [Unknown]
  - Flushing [Unknown]
  - Pain in jaw [Unknown]
  - Chest pain [Unknown]
  - Constipation [Unknown]
  - Abdominal distension [Unknown]
  - Heart rate increased [Unknown]
  - Pneumonia [Unknown]
  - Device leakage [Unknown]
  - Dizziness [Unknown]
  - Erythema [Unknown]
  - Weight increased [Unknown]
  - Anaemia [Unknown]
  - Palpitations [Unknown]
  - Gastrooesophageal reflux disease [Unknown]
  - Pericardial effusion [Unknown]
  - Infected naevus [Unknown]
  - Rash [Unknown]
  - Fatigue [Unknown]
  - Haematuria [Unknown]
  - Dyspnoea [Unknown]
  - Malaise [Unknown]
  - Tachycardia [Unknown]
  - Fluid overload [Unknown]
  - Pleural effusion [Unknown]
  - Catheter site discharge [Unknown]
  - Catheter management [Unknown]
  - Dyspnoea exertional [Unknown]
  - Nephrolithiasis [Unknown]
  - Decreased appetite [Unknown]
  - Flatulence [Unknown]
  - Influenza like illness [Unknown]
  - Diarrhoea [Unknown]
  - Renal stone removal [Recovered/Resolved]
  - Haemorrhoids [Unknown]
  - Haemoglobin decreased [Unknown]
  - Transfusion [Unknown]
  - Device related infection [Unknown]
  - Pain [Unknown]
  - Poor quality sleep [Unknown]

NARRATIVE: CASE EVENT DATE: 201708
